FAERS Safety Report 21073208 (Version 1)
Quarter: 2022Q3

REPORT INFORMATION
  Report Type: Spontaneous
  Country: US (occurrence: US)
  Receive Date: 20220712
  Receipt Date: 20220712
  Transmission Date: 20221027
  Serious: No
  Sender: FDA-Public Use
  Company Number: US-BAUSCH-BL-2022-017409

PATIENT
  Sex: Female

DRUGS (1)
  1. OPCON-A [Suspect]
     Active Substance: NAPHAZOLINE HYDROCHLORIDE\PHENIRAMINE MALEATE
     Indication: Instillation site pruritus
     Dosage: STARTED 9 MONTHS AGO
     Route: 047
     Dates: start: 2021, end: 20220703

REACTIONS (1)
  - Tinnitus [Recovered/Resolved]
